FAERS Safety Report 8920159 (Version 6)
Quarter: 2013Q4

REPORT INFORMATION
  Report Type: Spontaneous
  Country: JP (occurrence: JP)
  Receive Date: 20121122
  Receipt Date: 20131230
  Transmission Date: 20140711
  Serious: Yes (Hospitalization, Other)
  Sender: FDA-Public Use
  Company Number: PHHY2012JP105563

PATIENT
  Age: 71 Year
  Sex: Female
  Weight: 54 kg

DRUGS (9)
  1. AFINITOR [Suspect]
     Indication: PANCREATIC NEUROENDOCRINE TUMOUR
     Dosage: 10 MG, DAILY
     Route: 048
     Dates: start: 20120123, end: 20120507
  2. AFINITOR [Suspect]
     Dosage: 5 MG, DAILY
     Route: 048
     Dates: start: 20120619, end: 20130819
  3. SANDOSTATIN LAR [Suspect]
     Indication: PANCREATIC NEUROENDOCRINE TUMOUR
     Dosage: 30 MG, QD
     Route: 058
     Dates: start: 20111208, end: 20120924
  4. SANDOSTATIN LAR [Suspect]
     Dosage: 30 MG/DAY
     Route: 065
     Dates: start: 20130515, end: 20130624
  5. HACHIAZULE [Concomitant]
     Indication: PROPHYLAXIS
     Dosage: 6 G, QD
     Route: 048
     Dates: start: 20120123
  6. MEVALOTIN [Concomitant]
     Indication: PROPHYLAXIS
     Dosage: 10 MG
     Route: 048
     Dates: start: 20120313, end: 20120902
  7. HUMALOG [Concomitant]
     Dosage: UNK UKN, UNK
     Dates: start: 20120523
  8. GASMOTIN [Concomitant]
     Indication: PROPHYLAXIS
     Dosage: 15 MG
     Route: 048
     Dates: start: 20120301
  9. LIPITOR [Concomitant]
     Indication: PROPHYLAXIS
     Dosage: 10 MG
     Route: 048
     Dates: start: 20120903

REACTIONS (11)
  - Interstitial lung disease [Recovered/Resolved]
  - Hyperglycaemia [Recovered/Resolved]
  - Platelet count decreased [Recovered/Resolved]
  - Stomatitis [Recovering/Resolving]
  - Hyperlipidaemia [Recovered/Resolved]
  - Hepatic function abnormal [Recovered/Resolved]
  - Neoplasm progression [Not Recovered/Not Resolved]
  - Malignant neoplasm progression [Not Recovered/Not Resolved]
  - Pancreatic neuroendocrine tumour [Not Recovered/Not Resolved]
  - Pruritus [Recovered/Resolved]
  - Decreased appetite [Recovering/Resolving]
